FAERS Safety Report 8083146-9 (Version None)
Quarter: 2012Q1

REPORT INFORMATION
  Report Type: 
  Country: None (occurrence: None)
  Receive Date: 20120127
  Receipt Date: 20110207
  Transmission Date: 20120608
  Serious: No
  Sender: FDA-Public Use
  Company Number: US-ABBOTT-11P-163-0704477-00

PATIENT
  Sex: Female

DRUGS (5)
  1. SINGULAIR [Concomitant]
     Indication: ASTHMA
  2. ALLEGRA [Concomitant]
     Indication: ASTHMA
  3. LISINOPRIL AND HYDROCHLOROTHIAZIDE [Concomitant]
     Indication: HYPERTENSION
  4. ADVAIR DISKUS 100/50 [Concomitant]
     Indication: ASTHMA
  5. HUMIRA [Suspect]
     Indication: RHEUMATOID ARTHRITIS
     Dates: start: 20101112

REACTIONS (1)
  - PSORIASIS [None]
